FAERS Safety Report 10606772 (Version 1)
Quarter: 2014Q4

REPORT INFORMATION
  Report Type: Spontaneous
  Country: JP (occurrence: JP)
  Receive Date: 20141125
  Receipt Date: 20141125
  Transmission Date: 20150529
  Serious: Yes (Death)
  Sender: FDA-Public Use
  Company Number: JP-MALLINCKRODT-T201404153

PATIENT
  Age: 54 Year
  Sex: Female
  Weight: 52 kg

DRUGS (10)
  1. OXINORM                            /00045603/ [Concomitant]
     Dosage: 30 - 50 MG, PRN
     Route: 048
     Dates: start: 20140731
  2. PANTOSIN [Concomitant]
     Active Substance: PANTETHINE
     Dosage: 200 MG, UNK
     Route: 048
     Dates: start: 20140114, end: 20140811
  3. MAGMITT [Concomitant]
     Active Substance: MAGNESIUM OXIDE
     Dosage: 660 MG, UNK
     Route: 048
     Dates: start: 20140114, end: 20140811
  4. LASIX [Concomitant]
     Active Substance: FUROSEMIDE
     Dosage: 20 MG, UNK
     Route: 048
     Dates: start: 20140613, end: 20140811
  5. FENTOS [Concomitant]
     Active Substance: FENTANYL
     Dosage: 8 MG, UNK
     Route: 062
     Dates: start: 20140804, end: 20140806
  6. METHADONE [Suspect]
     Active Substance: METHADONE HYDROCHLORIDE
     Dosage: 10 MG, (20 MG DAILY DOSE)
     Route: 048
     Dates: start: 20140808, end: 20140811
  7. FENTOS [Concomitant]
     Active Substance: FENTANYL
     Dosage: 6 MG, UNK
     Route: 062
     Dates: start: 20140616, end: 20140803
  8. LYRICA [Concomitant]
     Active Substance: PREGABALIN
     Indication: ANALGESIC THERAPY
     Dosage: 150 MG, UNK
     Route: 048
     Dates: start: 20140502, end: 20140811
  9. FENTOS [Concomitant]
     Active Substance: FENTANYL
     Dosage: 12 MG, UNK
     Route: 062
     Dates: start: 20140807
  10. METHADONE [Suspect]
     Active Substance: METHADONE HYDROCHLORIDE
     Indication: CANCER PAIN
     Dosage: 5 MG, (15 MG DAILY DOSE)
     Route: 048
     Dates: start: 20140801, end: 20140807

REACTIONS (1)
  - Rectal cancer [Fatal]
